FAERS Safety Report 15400903 (Version 1)
Quarter: 2018Q3

REPORT INFORMATION
  Report Type: Spontaneous
  Country: US (occurrence: US)
  Receive Date: 20180919
  Receipt Date: 20180919
  Transmission Date: 20181010
  Serious: Yes (Hospitalization)
  Sender: FDA-Public Use
  Company Number: US-ROCHE-2185827

PATIENT
  Age: 37 Year
  Sex: Male

DRUGS (2)
  1. RITUXAN [Suspect]
     Active Substance: RITUXIMAB
     Indication: EOSINOPHILIC GRANULOMATOSIS WITH POLYANGIITIS
  2. RITUXAN [Suspect]
     Active Substance: RITUXIMAB
     Indication: PULMONARY VASCULITIS
     Route: 042
     Dates: start: 20180912, end: 20180912

REACTIONS (4)
  - Dyspnoea [Unknown]
  - Pharyngeal disorder [Unknown]
  - Intentional product use issue [Unknown]
  - Off label use [Unknown]

NARRATIVE: CASE EVENT DATE: 20180912
